FAERS Safety Report 23991733 (Version 1)
Quarter: 2024Q2

REPORT INFORMATION
  Report Type: Report from Study
  Country: US (occurrence: US)
  Receive Date: 20240619
  Receipt Date: 20240619
  Transmission Date: 20240715
  Serious: No
  Sender: FDA-Public Use
  Company Number: US-APELLIS-2024-APL-0000133

PATIENT

DRUGS (8)
  1. PEGCETACOPLAN [Suspect]
     Active Substance: PEGCETACOPLAN
     Indication: Paroxysmal nocturnal haemoglobinuria
     Dosage: INFUSE 1080 MG SUBCUTANEOUSLY TWICE WEEKLY AS DIRECTED
     Route: 058
     Dates: start: 20210831, end: 20240521
  2. FOLIC ACID [Concomitant]
     Active Substance: FOLIC ACID
  3. VITAMIN D NOS [Concomitant]
     Active Substance: CHOLECALCIFEROL\ERGOCALCIFEROL
  4. VITAMIN B COMPLEX [Concomitant]
     Active Substance: CYANOCOBALAMIN\DEXPANTHENOL\NIACINAMIDE\PYRIDOXINE HYDROCHLORIDE\RIBOFLAVIN 5^-PHOSPHATE SODIUM\THIA
  5. PEPCID [Concomitant]
     Active Substance: FAMOTIDINE
  6. TYLENOL [Concomitant]
     Active Substance: ACETAMINOPHEN
  7. ADVIL [Concomitant]
     Active Substance: IBUPROFEN\IBUPROFEN SODIUM
  8. EMPAVELI [Concomitant]
     Active Substance: PEGCETACOPLAN

REACTIONS (6)
  - Malaise [Unknown]
  - Product dose omission issue [Unknown]
  - Haemoglobin decreased [Unknown]
  - Platelet count decreased [Unknown]
  - Fatigue [Unknown]
  - Oesophageal spasm [Unknown]

NARRATIVE: CASE EVENT DATE: 20240301
